FAERS Safety Report 16959200 (Version 10)
Quarter: 2020Q2

REPORT INFORMATION
  Report Type: Report from Study
  Country: JP (occurrence: JP)
  Receive Date: 20191024
  Receipt Date: 20200517
  Transmission Date: 20200713
  Serious: Yes (Hospitalization)
  Sender: FDA-Public Use
  Company Number: JP-TAKEDA-2019TJP016099

PATIENT
  Age: 81 Year
  Sex: Male
  Weight: 62.2 kg

DRUGS (24)
  1. IXAZOMIB [Suspect]
     Active Substance: IXAZOMIB
     Dosage: 3 MILLIGRAM, 1/WEEK
     Route: 048
     Dates: start: 20190225, end: 20190408
  2. LENADEX [Suspect]
     Active Substance: DEXAMETHASONE ACETATE
     Indication: PLASMA CELL MYELOMA
     Dosage: 4 MILLIGRAM, 2/WEEK
     Route: 048
     Dates: start: 20190116
  3. IXAZOMIB [Suspect]
     Active Substance: IXAZOMIB
     Dosage: 2.3 MILLIGRAM, 1/WEEK
     Route: 048
     Dates: start: 20190130, end: 20190213
  4. BELSOMRA [Concomitant]
     Active Substance: SUVOREXANT
     Indication: INSOMNIA
     Dosage: 15 MILLIGRAM, QD
     Route: 048
     Dates: start: 20170529
  5. REBAMIPIDE [Concomitant]
     Active Substance: REBAMIPIDE
     Indication: GASTRITIS PROPHYLAXIS
     Dosage: 100 MILLIGRAM, TID
     Route: 048
     Dates: start: 20191218
  6. REVLIMID [Suspect]
     Active Substance: LENALIDOMIDE
     Dosage: 5 MILLIGRAM, QOD
     Route: 048
     Dates: start: 20190130, end: 20190421
  7. REVLIMID [Suspect]
     Active Substance: LENALIDOMIDE
     Dosage: 5 MILLIGRAM, QD
     Route: 048
     Dates: start: 20190703, end: 20190909
  8. NEXIUM [Concomitant]
     Active Substance: ESOMEPRAZOLE MAGNESIUM
     Indication: GASTRITIS PROPHYLAXIS
     Dosage: 20 MILLIGRAM, QD
     Route: 048
     Dates: start: 20170221
  9. BAYASPIRIN [Concomitant]
     Active Substance: ASPIRIN
     Indication: THROMBOSIS PROPHYLAXIS
     Dosage: 100 MILLIGRAM, QD
     Route: 048
     Dates: start: 2008
  10. HIRUDOID [Concomitant]
     Active Substance: GLYCOSAMINOGLYCANS
     Indication: DRY SKIN PROPHYLAXIS
     Dosage: UNK, BID
     Route: 061
     Dates: start: 20180910
  11. FLUCONAZOLE. [Concomitant]
     Active Substance: FLUCONAZOLE
     Indication: INFECTION PROPHYLAXIS
     Dosage: 200 MILLIGRAM, QD
     Route: 048
     Dates: start: 20191218
  12. BIOFERMIN                          /01617201/ [Concomitant]
     Active Substance: DIETARY SUPPLEMENT\PROBIOTICS
     Indication: DIARRHOEA
     Dosage: 1 DOSAGE FORM, TID
     Route: 048
     Dates: start: 20170821
  13. IXAZOMIB [Suspect]
     Active Substance: IXAZOMIB
     Indication: PLASMA CELL MYELOMA
     Dosage: 2.3 MILLIGRAM, 1/WEEK
     Route: 048
     Dates: start: 20190116, end: 20190116
  14. DAIPHEN [Concomitant]
     Active Substance: SULFAMETHOXAZOLE\TRIMETHOPRIM
     Indication: INFECTION PROPHYLAXIS
     Dosage: 1 DOSAGE FORM, 2/WEEK
     Route: 048
     Dates: start: 20170221
  15. TIGASON                            /00530101/ [Concomitant]
     Active Substance: ETRETINATE
     Indication: PSORIASIS
     Dosage: 10 MILLIGRAM, QD
     Route: 048
     Dates: start: 20171002
  16. REVLIMID [Suspect]
     Active Substance: LENALIDOMIDE
     Dosage: 5 MILLIGRAM, QOD
     Route: 048
     Dates: start: 20200115
  17. LENADEX [Suspect]
     Active Substance: DEXAMETHASONE ACETATE
     Dosage: 4 MILLIGRAM, 2/WEEK
     Route: 048
     Dates: start: 20190703
  18. DOVOBET [Concomitant]
     Active Substance: BETAMETHASONE\CALCIPOTRIENE
     Indication: PSORIASIS
     Dosage: UNK, QD
     Route: 061
     Dates: start: 20180910
  19. WHITE SOFT PARAFFIN [Concomitant]
     Active Substance: PARAFFIN
     Indication: PROPHYLAXIS
     Dosage: UNK, QD
     Route: 061
     Dates: start: 20171016
  20. AMBROXOL HYDROCHLORIDE [Concomitant]
     Active Substance: AMBROXOL HYDROCHLORIDE
     Indication: PRODUCTIVE COUGH
     Dosage: 45 MILLIGRAM, QD
     Route: 048
     Dates: start: 20191211
  21. LENADEX [Suspect]
     Active Substance: DEXAMETHASONE ACETATE
     Dosage: 4 MILLIGRAM, 2/WEEK
     Route: 048
     Dates: start: 20190130
  22. IXAZOMIB [Suspect]
     Active Substance: IXAZOMIB
     Dosage: 2.3 MILLIGRAM, 1/WEEK
     Route: 048
     Dates: start: 20190703, end: 20190821
  23. REVLIMID [Suspect]
     Active Substance: LENALIDOMIDE
     Indication: PLASMA CELL MYELOMA
     Dosage: 5 MILLIGRAM, QOD
     Route: 048
     Dates: start: 20190116, end: 20190122
  24. ZOLPIDEM TARTRATE. [Concomitant]
     Active Substance: ZOLPIDEM TARTRATE
     Indication: INSOMNIA
     Dosage: 5 MILLIGRAM, QD
     Route: 048
     Dates: start: 20170821

REACTIONS (8)
  - Anaemia [Not Recovered/Not Resolved]
  - Skin laceration [Recovered/Resolved]
  - Influenza [Recovered/Resolved]
  - Dehydration [Recovered/Resolved]
  - Spinal compression fracture [Recovering/Resolving]
  - Diarrhoea [Not Recovered/Not Resolved]
  - Enterocolitis bacterial [Recovered/Resolved]
  - Loss of consciousness [Recovered/Resolved]

NARRATIVE: CASE EVENT DATE: 20190122
